FAERS Safety Report 11291010 (Version 1)
Quarter: 2015Q3

REPORT INFORMATION
  Report Type: Spontaneous
  Country: US (occurrence: None)
  Receive Date: 20150720
  Receipt Date: 20150720
  Transmission Date: 20151125
  Serious: Yes (Hospitalization, Other)
  Sender: FDA-Public Use
  Company Number: 2015SGN01134

PATIENT
  Age: 53 Year
  Sex: Female

DRUGS (1)
  1. ADCETRIS [Suspect]
     Active Substance: BRENTUXIMAB VEDOTIN
     Indication: PRODUCT USED FOR UNKNOWN INDICATION
     Dosage: Q21D
     Dates: start: 20150414, end: 20150526

REACTIONS (3)
  - Progressive multifocal leukoencephalopathy [None]
  - Seizure [None]
  - Headache [None]
